FAERS Safety Report 4403792-0 (Version None)
Quarter: 2004Q3

REPORT INFORMATION
  Report Type: 
  Country: None (occurrence: None)
  Receive Date: 20040719
  Receipt Date: 20040708
  Transmission Date: 20050211
  Serious: No
  Sender: FDA-Public Use
  Company Number: 2004UW14109

PATIENT

DRUGS (1)
  1. TAMOXIFEN CITRATE [Suspect]

REACTIONS (2)
  - DISEASE RECURRENCE [None]
  - VENTRICULAR TACHYCARDIA [None]
